FAERS Safety Report 8596093-0 (Version None)
Quarter: 2012Q3

REPORT INFORMATION
  Report Type: 
  Country: None (occurrence: None)
  Receive Date: 20120815
  Receipt Date: 20120810
  Transmission Date: 20120928
  Serious: Yes (Hospitalization)
  Sender: FDA-Public Use
  Company Number: DE-ROCHE-1100110

PATIENT
  Sex: Female

DRUGS (3)
  1. AVASTIN [Suspect]
     Dosage: MAINTENANCE THERAPY
     Route: 042
     Dates: end: 20120619
  2. AVASTIN [Suspect]
     Indication: NON-SMALL CELL LUNG CANCER
     Dosage: DATE OF RECENT DOSE TAKEN PRIOR TO ONSET OF AE:19/JUN/2012
     Route: 042
     Dates: start: 20110714
  3. PEMETREXED DISODIUM [Suspect]
     Indication: NON-SMALL CELL LUNG CANCER

REACTIONS (1)
  - GLOMERULONEPHRITIS [None]
